FAERS Safety Report 7520011-7 (Version None)
Quarter: 2011Q2

REPORT INFORMATION
  Report Type: 
  Country: None (occurrence: None)
  Receive Date: 20110602
  Receipt Date: 20110519
  Transmission Date: 20111010
  Serious: Yes (Hospitalization, Other)
  Sender: FDA-Public Use
  Company Number: PHHY2011US43436

PATIENT
  Sex: Female

DRUGS (2)
  1. GLEEVEC [Suspect]
     Dosage: 400 MG, PER DAY
     Route: 048
  2. INSULIN [Concomitant]
     Dosage: UNK

REACTIONS (5)
  - THROMBOSIS [None]
  - RASH [None]
  - OMENTUM NEOPLASM [None]
  - PRURITUS [None]
  - INFECTION [None]
